FAERS Safety Report 8496279-X (Version None)
Quarter: 2012Q3

REPORT INFORMATION
  Report Type: 
  Country: None (occurrence: None)
  Receive Date: 20120709
  Receipt Date: 20120705
  Transmission Date: 20120928
  Serious: Yes (Disabling)
  Sender: FDA-Public Use
  Company Number: GB-PFIZER INC-2012160898

PATIENT
  Age: 52 Year
  Sex: Male
  Weight: 72 kg

DRUGS (2)
  1. VARENICLINE TARTRATE [Suspect]
     Dosage: 2 MG, UNK
  2. VARENICLINE TARTRATE [Suspect]
     Indication: SMOKING CESSATION THERAPY
     Dosage: 1 MG
     Route: 048

REACTIONS (6)
  - HYPERTENSION [None]
  - MOOD SWINGS [None]
  - DEPRESSION [None]
  - DYSGEUSIA [None]
  - ANXIETY [None]
  - EMOTIONAL DISORDER [None]
